FAERS Safety Report 18532664 (Version 5)
Quarter: 2021Q1

REPORT INFORMATION
  Report Type: Spontaneous
  Country: US (occurrence: US)
  Receive Date: 20201123
  Receipt Date: 20210318
  Transmission Date: 20210419
  Serious: Yes (Hospitalization, Other)
  Sender: FDA-Public Use
  Company Number: US-GLAXOSMITHKLINE-US2020AMR228091

PATIENT
  Sex: Female

DRUGS (4)
  1. ZEJULA [Suspect]
     Active Substance: NIRAPARIB
     Dosage: 100 MG, QD
     Route: 048
  2. ZEJULA [Suspect]
     Active Substance: NIRAPARIB
     Dosage: 100 MG, QD
  3. ZEJULA [Suspect]
     Active Substance: NIRAPARIB
     Indication: OVARIAN CANCER
     Dosage: 200 MG, QD
     Route: 048
     Dates: start: 20201103
  4. ZEJULA [Suspect]
     Active Substance: NIRAPARIB
     Dosage: 100 MG, QD
     Route: 048

REACTIONS (16)
  - Blood pressure abnormal [Unknown]
  - Myalgia [Unknown]
  - Blood pressure increased [Not Recovered/Not Resolved]
  - Blood pressure systolic increased [Unknown]
  - Pyrexia [Unknown]
  - Pain in extremity [Unknown]
  - Trigger finger [Unknown]
  - Epistaxis [Unknown]
  - Liver function test abnormal [Unknown]
  - Headache [Unknown]
  - Small intestinal obstruction [Unknown]
  - Feeling abnormal [Unknown]
  - Blood urine present [Unknown]
  - Abdominal pain [Unknown]
  - Conjunctivitis [Unknown]
  - Haemoglobin decreased [Unknown]
